FAERS Safety Report 5988369-8 (Version None)
Quarter: 2008Q4

REPORT INFORMATION
  Report Type: 
  Country: None (occurrence: None)
  Receive Date: 20081204
  Receipt Date: 20081121
  Transmission Date: 20090506
  Serious: Yes (Death)
  Sender: FDA-Public Use
  Company Number: GXKR2008JP11129

PATIENT
  Sex: Female
  Weight: 44 kg

DRUGS (3)
  1. ATENOLOL [Suspect]
     Indication: INCORRECT DOSE ADMINISTERED
     Dosage: 300 MG, ONCE/SINGLE
  2. PILSICAINIDE (PILSICAINIDE) [Suspect]
     Indication: INCORRECT DOSE ADMINISTERED
     Dosage: 300 MG, ONCE/SINGLE
  3. ACETYLSALICYLIC ACID SRT [Concomitant]

REACTIONS (9)
  - ARRHYTHMIA [None]
  - CARDIAC DISORDER [None]
  - DILATATION VENTRICULAR [None]
  - DRUG INTERACTION [None]
  - DRUG TOXICITY [None]
  - FIBROSIS [None]
  - MULTIPLE DRUG OVERDOSE [None]
  - PULMONARY OEDEMA [None]
  - SKIN LACERATION [None]
